FAERS Safety Report 5126406-3 (Version None)
Quarter: 2006Q3

REPORT INFORMATION
  Report Type: 
  Country: None (occurrence: None)
  Receive Date: 20060828
  Receipt Date: 20060202
  Transmission Date: 20061208
  Serious: Yes (Hospitalization)
  Sender: FDA-Public Use
  Company Number: 28518

PATIENT
  Age: 74 Year
  Sex: Male

DRUGS (3)
  1. TAMBOCOR [Suspect]
     Indication: ATRIAL FIBRILLATION
     Dosage: (150 MG,2 IN 1 DAY(S)),ORAL
     Route: 048
     Dates: start: 19930101, end: 20051101
  2. WARFARIN SODIUM [Concomitant]
  3. LORAZEPAM [Concomitant]

REACTIONS (3)
  - ARTERIOGRAM CORONARY ABNORMAL [None]
  - CHEST PAIN [None]
  - HEART RATE INCREASED [None]
